FAERS Safety Report 8518761-9 (Version None)
Quarter: 2012Q3

REPORT INFORMATION
  Report Type: 
  Country: None (occurrence: None)
  Receive Date: 20120718
  Receipt Date: 20120711
  Transmission Date: 20120928
  Serious: Yes (Other)
  Sender: FDA-Public Use
  Company Number: PHEH2012US013668

PATIENT
  Sex: Female

DRUGS (9)
  1. GILENYA [Suspect]
     Indication: MULTIPLE SCLEROSIS
     Dosage: 0.5 MG, QD
     Route: 048
     Dates: start: 20120629
  2. AMBIEN [Concomitant]
     Dosage: 10 MG, UNK
     Route: 048
  3. NEURONTIN [Concomitant]
     Dosage: 100 MG, UNK
     Route: 048
  4. NUVIGIL [Concomitant]
     Dosage: 150 MG, UNK
  5. VICODIN [Concomitant]
     Dosage: 1 DF, UNK
  6. IBUPROFEN [Concomitant]
     Dosage: 200 MG, UNK
     Route: 048
  7. BUPROPION HYDROCHLORIDE [Concomitant]
     Dosage: 100 MG, UNK
     Route: 048
  8. VITAMIN D [Concomitant]
     Dosage: 1000 U, UNK
  9. LORAZEPAM [Concomitant]
     Dosage: 0.5 MG, UNK
     Route: 048

REACTIONS (7)
  - FATIGUE [None]
  - DEPRESSION [None]
  - DIZZINESS [None]
  - FRUSTRATION [None]
  - VERTIGO [None]
  - SINUS TACHYCARDIA [None]
  - ARRHYTHMIA SUPRAVENTRICULAR [None]
